FAERS Safety Report 18776423 (Version 1)
Quarter: 2021Q1

REPORT INFORMATION
  Report Type: Spontaneous
  Country: US (occurrence: US)
  Receive Date: 20210122
  Receipt Date: 20210122
  Transmission Date: 20210419
  Serious: Yes (Hospitalization, Other)
  Sender: FDA-Public Use
  Company Number: US-PFIZER INC-2021018501

PATIENT
  Age: 49 Year
  Sex: Female

DRUGS (3)
  1. DROPERIDOL. [Suspect]
     Active Substance: DROPERIDOL
     Indication: SEDATIVE THERAPY
     Dosage: 1.25 MG
     Route: 042
  2. RANITIDINE. [Concomitant]
     Active Substance: RANITIDINE
     Dosage: UNK
  3. METOCLOPRAMIDE. [Concomitant]
     Active Substance: METOCLOPRAMIDE
     Dosage: UNK

REACTIONS (3)
  - Off label use [Unknown]
  - Bradycardia [Unknown]
  - Sinus arrest [Unknown]
